FAERS Safety Report 14549472 (Version 3)
Quarter: 2018Q1

REPORT INFORMATION
  Report Type: Spontaneous
  Country: CA (occurrence: CA)
  Receive Date: 20180219
  Receipt Date: 20180219
  Transmission Date: 20180509
  Serious: Yes (Other)
  Sender: FDA-Public Use
  Company Number: CA-CONCORDIA PHARMACEUTICALS INC.-GSH201802-000631

PATIENT
  Age: 86 Year
  Sex: Female

DRUGS (10)
  1. ENBREL [Suspect]
     Active Substance: ETANERCEPT
     Indication: RHEUMATOID ARTHRITIS
     Route: 065
     Dates: start: 20170214
  2. PREDNISONE. [Concomitant]
     Active Substance: PREDNISONE
  3. ASA [Concomitant]
     Active Substance: ASPIRIN
  4. ADALAT CC [Concomitant]
     Active Substance: NIFEDIPINE
  5. COVERSYL [Concomitant]
     Active Substance: PERINDOPRIL
  6. PLAQUENIL [Suspect]
     Active Substance: HYDROXYCHLOROQUINE SULFATE
     Indication: PRODUCT USED FOR UNKNOWN INDICATION
     Route: 048
  7. LYRICA [Concomitant]
     Active Substance: PREGABALIN
  8. HUMIRA [Concomitant]
     Active Substance: ADALIMUMAB
  9. METHOTREXATE. [Suspect]
     Active Substance: METHOTREXATE
     Indication: PRODUCT USED FOR UNKNOWN INDICATION
     Route: 065
  10. HYDROCHLOROTHIAZIDE. [Concomitant]
     Active Substance: HYDROCHLOROTHIAZIDE

REACTIONS (7)
  - Hypoaesthesia [Unknown]
  - Lymphadenopathy [Unknown]
  - Loss of personal independence in daily activities [Unknown]
  - Muscular weakness [Unknown]
  - Renal impairment [Unknown]
  - Cough [Unknown]
  - Osteoarthritis [Unknown]
